FAERS Safety Report 7605631-3 (Version None)
Quarter: 2011Q3

REPORT INFORMATION
  Report Type: 
  Country: None (occurrence: None)
  Receive Date: 20110713
  Receipt Date: 20110713
  Transmission Date: 20111222
  Serious: Yes (Disabling, Other)
  Sender: FDA-Public Use
  Company Number: None

PATIENT
  Sex: Female
  Weight: 111.13 kg

DRUGS (2)
  1. AVASTIN [Suspect]
     Indication: UVEITIS
     Dosage: TWO INJECTIONS PER EYE
     Route: 021
     Dates: start: 20110301, end: 20110630
  2. AVASTIN [Suspect]
     Indication: SARCOIDOSIS
     Dosage: TWO INJECTIONS PER EYE
     Route: 021
     Dates: start: 20110301, end: 20110630

REACTIONS (28)
  - MUSCULAR WEAKNESS [None]
  - DECREASED APPETITE [None]
  - DYSPEPSIA [None]
  - AGEUSIA [None]
  - HEADACHE [None]
  - PRURITUS [None]
  - DIZZINESS [None]
  - EAR PAIN [None]
  - CHOKING [None]
  - PAIN [None]
  - BALANCE DISORDER [None]
  - OEDEMA PERIPHERAL [None]
  - CONFUSIONAL STATE [None]
  - WEIGHT INCREASED [None]
  - COORDINATION ABNORMAL [None]
  - PHARYNGEAL OEDEMA [None]
  - DRY MOUTH [None]
  - DYSPNOEA [None]
  - SKIN EXFOLIATION [None]
  - TOOTHACHE [None]
  - ODYNOPHAGIA [None]
  - ASTHENIA [None]
  - ERYTHEMA [None]
  - FEELING HOT [None]
  - SALIVARY HYPERSECRETION [None]
  - SPEECH DISORDER [None]
  - JOINT SWELLING [None]
  - FATIGUE [None]
